FAERS Safety Report 4786704-X (Version None)
Quarter: 2005Q3

REPORT INFORMATION
  Report Type: 
  Country: None (occurrence: None)
  Receive Date: 20050930
  Receipt Date: 20050915
  Transmission Date: 20060218
  Serious: Yes (Other)
  Sender: FDA-Public Use
  Company Number: 12405

PATIENT
  Age: 6 Year

DRUGS (3)
  1. VINCRISTINE [Suspect]
     Indication: RHABDOMYOSARCOMA
     Dosage: 1.5 MG /M2 PER CYCLE
  2. CYCLOPHOSPHAMIDE [Suspect]
     Indication: RHABDOMYOSARCOMA
     Dosage: 2200 MG/M2 PER CYCLE
  3. DACTINOMYCIN [Suspect]
     Indication: RHABDOMYOSARCOMA
     Dosage: 1.5 MG /M2 PER CYCLE

REACTIONS (1)
  - VENOOCCLUSIVE LIVER DISEASE [None]
